FAERS Safety Report 4439684-0 (Version None)
Quarter: 2004Q3

REPORT INFORMATION
  Report Type: 
  Country: None (occurrence: None)
  Receive Date: 20040831
  Receipt Date: 20040816
  Transmission Date: 20050211
  Serious: Yes (Death, Hospitalization)
  Sender: FDA-Public Use
  Company Number: 04P-008-0270937-00

PATIENT
  Age: 45 Year
  Sex: Female

DRUGS (5)
  1. RITONAVIR [Suspect]
     Indication: HIV INFECTION
     Dosage: 100 MG, 2 IN 1 D, PER ORAL
     Route: 048
  2. ABACAVIR [Suspect]
     Indication: HIV INFECTION
     Dosage: 100 MG, 2 IN 1 D, PER ORAL
     Route: 048
  3. INDINAVIR [Suspect]
     Indication: HIV INFECTION
     Dosage: 100 MG, 2 IN 1 D, PER ORAL
     Route: 048
  4. LAMIVUDINE [Concomitant]
  5. PHENYTOIN [Concomitant]

REACTIONS (7)
  - ABDOMINAL PAIN [None]
  - COAGULOPATHY [None]
  - ENCEPHALOPATHY [None]
  - HEPATIC FAILURE [None]
  - HEPATITIS B [None]
  - RENAL FAILURE [None]
  - VOMITING [None]
